FAERS Safety Report 12462103 (Version 1)
Quarter: 2016Q2

REPORT INFORMATION
  Report Type: Report from Study
  Country: US (occurrence: US)
  Receive Date: 20160613
  Receipt Date: 20160613
  Transmission Date: 20160815
  Serious: Yes (Hospitalization)
  Sender: FDA-Public Use
  Company Number: US-ABBVIE-16K-163-1645053-00

PATIENT
  Age: 36 Year
  Sex: Female

DRUGS (2)
  1. HUMIRA [Suspect]
     Active Substance: ADALIMUMAB
     Indication: HIDRADENITIS
     Dosage: INITIAL DOSE
     Route: 058
     Dates: start: 20160505, end: 20160505
  2. HUMIRA [Suspect]
     Active Substance: ADALIMUMAB
     Route: 058
     Dates: start: 20160519, end: 20160519

REACTIONS (9)
  - Axillary pain [Unknown]
  - Local swelling [Unknown]
  - Pain in extremity [Unknown]
  - Breast swelling [Unknown]
  - Skin exfoliation [Not Recovered/Not Resolved]
  - Breast pain [Unknown]
  - Infection [Not Recovered/Not Resolved]
  - Peripheral swelling [Unknown]
  - Sunburn [Unknown]

NARRATIVE: CASE EVENT DATE: 20160521
